FAERS Safety Report 6746256-1 (Version None)
Quarter: 2010Q2

REPORT INFORMATION
  Report Type: 
  Country: None (occurrence: None)
  Receive Date: 20100528
  Receipt Date: 20090903
  Transmission Date: 20101027
  Serious: No
  Sender: FDA-Public Use
  Company Number: US-ASTRAZENECA-2009SE11323

PATIENT
  Age: 870 Month
  Sex: Male

DRUGS (3)
  1. OMEPRAZOLE [Suspect]
     Indication: DYSPEPSIA
     Route: 048
     Dates: start: 20090801
  2. OMEPRAZOLE [Suspect]
     Route: 048
     Dates: start: 20090903
  3. PRAVASTATIN [Concomitant]

REACTIONS (3)
  - DRY MOUTH [None]
  - DYSPEPSIA [None]
  - NERVOUSNESS [None]
